FAERS Safety Report 8111794-6 (Version None)
Quarter: 2011Q4

REPORT INFORMATION
  Report Type: 
  Country: None (occurrence: None)
  Receive Date: 20111223
  Receipt Date: 20110117
  Transmission Date: 20120403
  Serious: Yes (Other)
  Sender: FDA-Public Use
  Company Number: PHHY2010US88578

PATIENT
  Age: 45 Year
  Sex: Male

DRUGS (7)
  1. STATIN (STATIN) [Concomitant]
  2. APLINYEN (APLINYEN) [Concomitant]
  3. MORPHINE [Suspect]
     Dosage: ORAL
     Route: 048
     Dates: start: 20111028
  4. XANAX [Concomitant]
  5. LAMICTAL [Concomitant]
  6. DIOVAN [Concomitant]
  7. CLOZARIL [Suspect]
     Indication: SCHIZOAFFECTIVE DISORDER
     Dosage: 300 MG/ DAILY, ORAL 100 MG, ORAL 200 MG
     Route: 048

REACTIONS (5)
  - BACK PAIN [None]
  - DIZZINESS [None]
  - CONVULSION [None]
  - SOMNOLENCE [None]
  - LOSS OF CONSCIOUSNESS [None]
